FAERS Safety Report 5097217-2 (Version None)
Quarter: 2006Q3

REPORT INFORMATION
  Report Type: 
  Country: None (occurrence: None)
  Receive Date: 20060906
  Receipt Date: 20060811
  Transmission Date: 20061208
  Serious: Yes (Other)
  Sender: FDA-Public Use
  Company Number: JP-ROCHE-459737

PATIENT
  Age: 49 Year
  Sex: Male
  Weight: 72 kg

DRUGS (12)
  1. ROCEPHIN [Suspect]
     Route: 041
     Dates: start: 20060720, end: 20060720
  2. ROCEPHIN [Suspect]
     Dosage: DRUG REPORTED AS ROCEPHIN 1 G BAG.
     Route: 041
     Dates: start: 20060702, end: 20060702
  3. ROCEPHIN [Suspect]
     Route: 041
     Dates: start: 20060704, end: 20060704
  4. ROCEPHIN [Suspect]
     Route: 041
     Dates: start: 20060711, end: 20060711
  5. ROCEPHIN [Suspect]
     Route: 041
     Dates: start: 20060713, end: 20060713
  6. AVELOX [Suspect]
     Route: 048
     Dates: start: 20060711, end: 20060715
  7. AVELOX [Suspect]
     Route: 048
     Dates: start: 20060720, end: 20060722
  8. LOXONIN [Concomitant]
     Route: 048
     Dates: start: 20060702, end: 20060725
  9. DASEN [Concomitant]
     Route: 048
     Dates: start: 20060702, end: 20060725
  10. PL [Concomitant]
     Route: 048
     Dates: start: 20060702, end: 20060725
  11. ADALAT [Concomitant]
     Route: 048
     Dates: start: 20060702
  12. MEIACT [Concomitant]
     Route: 048
     Dates: start: 20060704, end: 20060708

REACTIONS (7)
  - ARTHRALGIA [None]
  - DRUG INEFFECTIVE [None]
  - LEUKOCYTOCLASTIC VASCULITIS [None]
  - PAIN [None]
  - PHARYNGOLARYNGEAL PAIN [None]
  - STREPTOCOCCAL INFECTION [None]
  - TOXIC SKIN ERUPTION [None]
